FAERS Safety Report 11202961 (Version 1)
Quarter: 2015Q2

REPORT INFORMATION
  Report Type: Spontaneous
  Country: US (occurrence: US)
  Receive Date: 20150619
  Receipt Date: 20150619
  Transmission Date: 20150821
  Serious: No
  Sender: FDA-Public Use
  Company Number: US-009507513-1506USA006111

PATIENT
  Age: 20 Year
  Sex: Female
  Weight: 82.54 kg

DRUGS (2)
  1. GOODY^S HEADACHE POWDERS [Concomitant]
     Indication: MIGRAINE
  2. IMPLANON [Suspect]
     Active Substance: ETONOGESTREL
     Indication: CONTRACEPTION
     Dosage: 3 YEARS IMPLANT IN LEFT ARM
     Route: 059
     Dates: start: 201209

REACTIONS (9)
  - Discomfort [Not Recovered/Not Resolved]
  - Adnexa uteri pain [Unknown]
  - Pain [Unknown]
  - Polymenorrhoea [Unknown]
  - Secretion discharge [Unknown]
  - Menstrual disorder [Unknown]
  - Device dislocation [Not Recovered/Not Resolved]
  - Abdominal pain [Unknown]
  - Migraine [Unknown]

NARRATIVE: CASE EVENT DATE: 201209
